FAERS Safety Report 4527577-X (Version None)
Quarter: 2004Q4

REPORT INFORMATION
  Report Type: 
  Country: None (occurrence: None)
  Receive Date: 20041124
  Receipt Date: 20040903
  Transmission Date: 20050328
  Serious: Yes (Life-Threatening)
  Sender: FDA-Public Use
  Company Number: 239131

PATIENT
  Age: 82 Year
  Sex: Female
  Weight: 54.4 kg

DRUGS (4)
  1. NOVOLOG MIX 70/30 [Suspect]
     Indication: INSULIN-REQUIRING TYPE II DIABETES MELLITUS
     Dosage: 48 IU, QD, SUBCUTANEOUS
     Route: 058
  2. LIPITOR [Concomitant]
  3. ARICEPT [Concomitant]
  4. ASPIRIN [Concomitant]

REACTIONS (1)
  - HYPOGLYCAEMIC COMA [None]
